FAERS Safety Report 5536948-4 (Version None)
Quarter: 2007Q4

REPORT INFORMATION
  Report Type: 
  Country: None (occurrence: None)
  Receive Date: 20071207
  Receipt Date: 20071129
  Transmission Date: 20080405
  Serious: Yes (Hospitalization, Other)
  Sender: FDA-Public Use
  Company Number: PHEH2007US15315

PATIENT
  Age: 67 Year
  Sex: Male

DRUGS (13)
  1. ZOMETA [Suspect]
     Dosage: 4 MG, UNK
     Route: 042
     Dates: start: 20050630
  2. ZOMETA [Suspect]
     Dosage: 4 MG, UNK
     Dates: start: 20050718
  3. ZOMETA [Suspect]
     Dosage: 4 MG, UNK
     Dates: start: 20070815
  4. REVLIMID [Suspect]
     Indication: MULTIPLE MYELOMA
     Dosage: 25 MG, QD
     Route: 048
     Dates: start: 20070801, end: 20070801
  5. ACETYLSALICYLIC ACID SRT [Concomitant]
  6. DECADRON /NET/ [Concomitant]
     Dosage: 40 MG, QW
  7. HYDROCODONE BITARTRATE [Concomitant]
     Indication: PAIN
  8. RENAGEL [Concomitant]
  9. GLYCOLAX [Concomitant]
  10. ALLOPURINOL [Concomitant]
  11. PRILOSEC [Concomitant]
  12. AMBIEN [Concomitant]
  13. MS CONTIN [Concomitant]
     Indication: PAIN
     Dosage: 30 MG, BID

REACTIONS (13)
  - ABDOMINAL PAIN [None]
  - ANAEMIA [None]
  - BACK PAIN [None]
  - BLOOD URIC ACID INCREASED [None]
  - DEHYDRATION [None]
  - DIARRHOEA [None]
  - FATIGUE [None]
  - HAEMATOCRIT DECREASED [None]
  - HYPERCALCAEMIA [None]
  - HYPERURICAEMIA [None]
  - OSTEOLYSIS [None]
  - RENAL FAILURE [None]
  - WHITE BLOOD CELL COUNT DECREASED [None]
